FAERS Safety Report 5144505-7 (Version None)
Quarter: 2006Q4

REPORT INFORMATION
  Report Type: 
  Country: None (occurrence: None)
  Receive Date: 20061031
  Receipt Date: 20061027
  Transmission Date: 20070319
  Serious: Yes (Hospitalization)
  Sender: FDA-Public Use
  Company Number: FRWYE868506SEP06

PATIENT
  Age: 87 Year
  Sex: Female

DRUGS (3)
  1. EFFEXOR [Suspect]
     Indication: DEPRESSION
     Dosage: 12.5 MG 1X PER 1 DAY ORAL
     Route: 048
     Dates: start: 20060517, end: 20060613
  2. TAREG             (VALSARTAN) [Concomitant]
  3. COLOPRIV                     (MEBEVERINE HYDROCHLORIDE) [Concomitant]

REACTIONS (4)
  - ANXIETY [None]
  - CEREBROVASCULAR DISORDER [None]
  - DISORIENTATION [None]
  - METABOLIC SYNDROME [None]
